FAERS Safety Report 5991291-4 (Version None)
Quarter: 2008Q4

REPORT INFORMATION
  Report Type: 
  Country: None (occurrence: None)
  Receive Date: 20081202
  Receipt Date: 20080207
  Transmission Date: 20090506
  Serious: Yes (Other)
  Sender: FDA-Public Use
  Company Number: WAES 0802USA01765

PATIENT
  Age: 52 Year
  Sex: Female
  Weight: 65.7716 kg

DRUGS (5)
  1. FOSAMAX [Suspect]
     Indication: MENOPAUSE
     Dosage: 70 MG/PO
     Route: 048
     Dates: start: 19980101, end: 20080101
  2. FOSAMAX [Suspect]
     Indication: OSTEOPENIA
     Dosage: 70 MG/PO
     Route: 048
     Dates: start: 19980101, end: 20080101
  3. FOSAMAX PLUS D [Suspect]
     Indication: MENOPAUSE
     Dosage: 70 MG/2800 IU/WKY/PO
     Route: 048
     Dates: start: 20080101
  4. FOSAMAX PLUS D [Suspect]
     Indication: OSTEOPENIA
     Dosage: 70 MG/2800 IU/WKY/PO
     Route: 048
     Dates: start: 20080101
  5. SYNTHROID [Concomitant]

REACTIONS (1)
  - ARTHRALGIA [None]
